FAERS Safety Report 16580525 (Version 1)
Quarter: 2019Q3

REPORT INFORMATION
  Report Type: Spontaneous
  Country: IT (occurrence: IT)
  Receive Date: 20190716
  Receipt Date: 20190716
  Transmission Date: 20191004
  Serious: Yes (Other)
  Sender: FDA-Public Use
  Company Number: IT-PFIZER INC-2019295254

PATIENT
  Age: 43 Year
  Sex: Female

DRUGS (10)
  1. DEXAMETHASONE. [Concomitant]
     Active Substance: DEXAMETHASONE
     Indication: PREMEDICATION
  2. PEGYLATED LIPOSOMAL DOXORUBICIN [Interacting]
     Active Substance: DOXORUBICIN
     Indication: OVARIAN CANCER STAGE III
     Dosage: 30 MG/M2, CYCLIC (30 MG/M^2 G1 Q21)
     Dates: start: 201711
  3. EZETIMIBE. [Concomitant]
     Active Substance: EZETIMIBE
     Dosage: 10 MG, DAILY (REDUCED)
  4. ATORVASTATIN CALCIUM. [Suspect]
     Active Substance: ATORVASTATIN CALCIUM
     Indication: HYPERCHOLESTEROLAEMIA
     Dosage: 80 MG, DAILY
  5. ATORVASTATIN CALCIUM. [Interacting]
     Active Substance: ATORVASTATIN CALCIUM
     Dosage: 20 MG, UNK (REDUCED)
  6. TRABECTEDIN [Interacting]
     Active Substance: TRABECTEDIN
     Dosage: 0.9 MG/M2, CYCLIC (REDUCED)
  7. TRABECTEDIN [Interacting]
     Active Substance: TRABECTEDIN
     Indication: OVARIAN CANCER STAGE III
     Dosage: 1.1 MG/M2, CYCLIC (MG/M^1 G1)
     Dates: start: 201711
  8. DEXAMETHASONE. [Concomitant]
     Active Substance: DEXAMETHASONE
     Indication: STEROID THERAPY
     Dosage: UNK
  9. EZETIMIBE. [Concomitant]
     Active Substance: EZETIMIBE
     Indication: TYPE IIA HYPERLIPIDAEMIA
     Dosage: UNK
  10. PEGYLATED LIPOSOMAL DOXORUBICIN [Interacting]
     Active Substance: DOXORUBICIN
     Dosage: 20 MG/M2, CYCLIC (REDUCED)

REACTIONS (5)
  - Presyncope [Unknown]
  - Vomiting [Unknown]
  - Drug interaction [Unknown]
  - Muscle spasms [Unknown]
  - Asthenia [Unknown]
